FAERS Safety Report 19397318 (Version 1)
Quarter: 2021Q2

REPORT INFORMATION
  Report Type: Spontaneous
  Country: US (occurrence: US)
  Receive Date: 20210609
  Receipt Date: 20210609
  Transmission Date: 20210717
  Serious: Yes (Other)
  Sender: FDA-Public Use
  Company Number: US-SA-2021SA192189

PATIENT
  Age: 67 Year
  Sex: Female

DRUGS (1)
  1. DULCOLAX (BISACODYL) [Suspect]
     Active Substance: BISACODYL
     Indication: CONSTIPATION
     Route: 054

REACTIONS (3)
  - Multiple system atrophy [Unknown]
  - Therapeutic product effect variable [Unknown]
  - Parkinsonism [Unknown]
